FAERS Safety Report 7662075-6 (Version None)
Quarter: 2011Q3

REPORT INFORMATION
  Report Type: 
  Country: None (occurrence: None)
  Receive Date: 20110805
  Receipt Date: 20101130
  Transmission Date: 20111222
  Serious: No
  Sender: FDA-Public Use
  Company Number: US-ABBOTT-10P-163-0689058-00

PATIENT
  Age: 48 Year
  Sex: Male
  Weight: 106.24 kg

DRUGS (13)
  1. NIASPAN [Suspect]
     Indication: BLOOD CHOLESTEROL INCREASED
     Dates: start: 20101011, end: 20101021
  2. LASIX [Concomitant]
     Indication: FLUID RETENTION
  3. OMEPRAZOLE [Concomitant]
     Indication: PRODUCT USED FOR UNKNOWN INDICATION
  4. COZAAR [Concomitant]
     Indication: HYPERTENSION
  5. PHOSLO [Concomitant]
     Indication: MINERAL SUPPLEMENTATION
  6. PHENERGAN HCL [Concomitant]
     Indication: PRODUCT USED FOR UNKNOWN INDICATION
  7. NASONEX [Concomitant]
     Indication: HYPERSENSITIVITY
  8. COREG [Concomitant]
     Indication: HYPERTENSION
  9. COLCHICINE [Concomitant]
     Indication: GOUT
  10. SINGULAIR [Concomitant]
     Indication: HYPERSENSITIVITY
  11. ASPIRIN [Concomitant]
     Indication: PRODUCT USED FOR UNKNOWN INDICATION
  12. ZOCOR [Suspect]
     Indication: BLOOD CHOLESTEROL INCREASED
  13. INDOMETHACIN [Concomitant]
     Indication: GOUT

REACTIONS (9)
  - HAEMATOCHEZIA [None]
  - COUGH [None]
  - DIZZINESS [None]
  - OROPHARYNGEAL PAIN [None]
  - ASTHENIA [None]
  - VOMITING [None]
  - NAUSEA [None]
  - PAIN [None]
  - FATIGUE [None]
